FAERS Safety Report 5697920-7 (Version None)
Quarter: 2008Q2

REPORT INFORMATION
  Report Type: 
  Country: None (occurrence: None)
  Receive Date: 20080408
  Receipt Date: 20080327
  Transmission Date: 20081010
  Serious: Yes (Other)
  Sender: FDA-Public Use
  Company Number: JP-ROCHE-556539

PATIENT
  Age: 52 Year
  Sex: Female

DRUGS (9)
  1. HORIZON [Suspect]
     Indication: DRUG USE FOR UNKNOWN INDICATION
     Route: 042
     Dates: start: 20080225, end: 20080225
  2. LACTEC [Concomitant]
     Route: 042
     Dates: start: 20080225, end: 20080225
  3. LACTEC [Concomitant]
     Route: 042
     Dates: start: 20080225, end: 20080225
  4. LACTEC [Concomitant]
     Route: 042
     Dates: start: 20080225, end: 20080225
  5. LACTEC [Concomitant]
     Route: 042
     Dates: start: 20080225, end: 20080225
  6. TS-1 [Concomitant]
     Route: 048
  7. TS-1 [Concomitant]
     Route: 048
  8. TS-1 [Concomitant]
     Route: 048
  9. HERBAL EXTRACTS NOS [Concomitant]
     Dosage: DAIKENCHU-TO/CHINESE HERBAL MEDICINE.
     Route: 048

REACTIONS (2)
  - INJECTION SITE PAIN [None]
  - VASCULAR INJURY [None]
